FAERS Safety Report 10474387 (Version 1)
Quarter: 2014Q3

REPORT INFORMATION
  Report Type: Spontaneous
  Country: GB (occurrence: GB)
  Receive Date: 20140924
  Receipt Date: 20140924
  Transmission Date: 20150326
  Serious: Yes (Life-Threatening, Hospitalization)
  Sender: FDA-Public Use
  Company Number: GB-NOVOPROD-421223

PATIENT
  Age: 18 Year
  Sex: Female
  Weight: 72 kg

DRUGS (4)
  1. NORDITROPIN [Suspect]
     Active Substance: SOMATROPIN
     Indication: TURNER^S SYNDROME
     Dosage: 1.0 MG, QD (STARTED AT 1.0 MG DAILY INCREASING OVER TIME TO 2.0 MG DAILY
     Route: 058
     Dates: start: 20030328
  2. NORDITROPIN [Suspect]
     Active Substance: SOMATROPIN
     Dosage: 2.0 MG, QD
     Route: 058
     Dates: end: 201103
  3. SOMATROPIN [Suspect]
     Active Substance: SOMATROPIN
     Indication: TURNER^S SYNDROME
     Dosage: 2 MG, QD
     Route: 058
     Dates: start: 201103, end: 201305
  4. ELLESTE DUET [Concomitant]
     Indication: PRODUCT USED FOR UNKNOWN INDICATION
     Dosage: 2 MG

REACTIONS (11)
  - Tumour haemorrhage [Unknown]
  - Glioblastoma multiforme [Not Recovered/Not Resolved]
  - Vomiting [Unknown]
  - Headache [Unknown]
  - Nausea [Unknown]
  - Blood pressure increased [Unknown]
  - VIth nerve paralysis [Unknown]
  - Brain midline shift [Unknown]
  - VIIth nerve paralysis [Unknown]
  - Vasogenic cerebral oedema [Unknown]
  - Tumour necrosis [Unknown]

NARRATIVE: CASE EVENT DATE: 201406
